FAERS Safety Report 19802841 (Version 1)
Quarter: 2021Q3

REPORT INFORMATION
  Report Type: Spontaneous
  Country: US (occurrence: US)
  Receive Date: 20210908
  Receipt Date: 20210908
  Transmission Date: 20211014
  Serious: Yes (Hospitalization)
  Sender: FDA-Public Use
  Company Number: None

PATIENT
  Age: 56 Year
  Sex: Female
  Weight: 100 kg

DRUGS (1)
  1. CRIZANLIZUMAB [Suspect]
     Active Substance: CRIZANLIZUMAB
     Indication: SICKLE CELL ANAEMIA WITH CRISIS
     Dosage: ?          OTHER FREQUENCY:ONCE;?
     Route: 042
     Dates: start: 20210409, end: 20210409

REACTIONS (9)
  - Tachycardia [None]
  - Thrombocytopenia [None]
  - Troponin increased [None]
  - Chest pain [None]
  - Pain [None]
  - Haemolytic anaemia [None]
  - Back pain [None]
  - Neck pain [None]
  - Headache [None]

NARRATIVE: CASE EVENT DATE: 20210409
